FAERS Safety Report 11050833 (Version 1)
Quarter: 2015Q2

REPORT INFORMATION
  Report Type: Spontaneous
  Country: US (occurrence: None)
  Receive Date: 20150420
  Receipt Date: 20150420
  Transmission Date: 20150821
  Serious: No
  Sender: FDA-Public Use
  Company Number: None

PATIENT
  Age: 9 Year
  Sex: Male
  Weight: 27.22 kg

DRUGS (3)
  1. MULTIVITAMIN FLUORIDE [Concomitant]
  2. BEPREVE [Suspect]
     Active Substance: BEPOTASTINE\BEPOTASTINE BESILATE
     Indication: HYPERSENSITIVITY
     Dosage: YES, TWICE DAILY, INTO THE EYE
     Dates: start: 20150418, end: 20150419
  3. BEPREVE [Suspect]
     Active Substance: BEPOTASTINE\BEPOTASTINE BESILATE
     Indication: EYE PRURITUS
     Dosage: YES, TWICE DAILY, INTO THE EYE
     Dates: start: 20150418, end: 20150419

REACTIONS (3)
  - Eye pain [None]
  - Dysgeusia [None]
  - Eye irritation [None]

NARRATIVE: CASE EVENT DATE: 20150419
